FAERS Safety Report 5526641-6 (Version None)
Quarter: 2007Q4

REPORT INFORMATION
  Report Type: 
  Country: None (occurrence: None)
  Receive Date: 20071123
  Receipt Date: 20070524
  Transmission Date: 20080405
  Serious: Yes (Hospitalization)
  Sender: FDA-Public Use
  Company Number: 2007MP000245

PATIENT
  Age: 70 Year
  Sex: Male

DRUGS (2)
  1. GLIADEL [Suspect]
     Indication: METASTASES TO CENTRAL NERVOUS SYSTEM
     Dosage: 30.8 MG;X1;ICER
     Dates: start: 20070313, end: 20070503
  2. DEXAMETHASONE TAB [Concomitant]

REACTIONS (2)
  - CEREBRAL CYST [None]
  - DRUG ADMINISTRATION ERROR [None]
